FAERS Safety Report 4506573-2 (Version None)
Quarter: 2004Q4

REPORT INFORMATION
  Report Type: 
  Country: None (occurrence: None)
  Receive Date: 20041117
  Receipt Date: 20041108
  Transmission Date: 20050328
  Serious: Yes (Death)
  Sender: FDA-Public Use
  Company Number: CERZ-10701

PATIENT
  Age: 19 Month
  Sex: Male

DRUGS (1)
  1. CEREZYME [Suspect]
     Indication: GAUCHER'S DISEASE
     Dosage: 1600 UNITS QWK IV
     Route: 042
     Dates: start: 20030904, end: 20041101

REACTIONS (3)
  - CARDIAC ARREST [None]
  - DISEASE PROGRESSION [None]
  - GAUCHER'S DISEASE [None]
